FAERS Safety Report 6254909-7 (Version None)
Quarter: 2009Q3

REPORT INFORMATION
  Report Type: 
  Country: None (occurrence: None)
  Receive Date: 20090702
  Receipt Date: 20090623
  Transmission Date: 20100115
  Serious: Yes (Hospitalization)
  Sender: FDA-Public Use
  Company Number: FR-PFIZER INC-2009230654

PATIENT
  Age: 85 Year

DRUGS (8)
  1. TAHOR [Suspect]
     Dosage: 10 MG, 1X/DAY
     Route: 048
  2. TRIATEC [Suspect]
     Dosage: UNK
     Route: 048
     Dates: end: 20090512
  3. NEBIVOLOL HYDROCHLORIDE [Suspect]
     Dosage: 2.5 MG, 2X/DAY
     Route: 048
  4. KARDEGIC [Suspect]
     Dosage: 160 MG, 1X/DAY
     Route: 048
  5. NEXIUM [Suspect]
     Dosage: 20 MG, 1X/DAY
     Route: 048
  6. LORAZEPAM [Suspect]
     Dosage: UNK
     Route: 048
  7. LASIX [Concomitant]
     Dosage: UNK
  8. KALEORID [Concomitant]
     Dosage: 600 UNK, UNK

REACTIONS (2)
  - NEUTROPENIA [None]
  - THROMBOCYTOPENIA [None]
